FAERS Safety Report 5141541-1 (Version None)
Quarter: 2006Q4

REPORT INFORMATION
  Report Type: 
  Country: None (occurrence: None)
  Receive Date: 20061026
  Receipt Date: 20061011
  Transmission Date: 20070319
  Serious: Yes (Hospitalization, Other)
  Sender: FDA-Public Use
  Company Number: 2006127215

PATIENT
  Age: 57 Year
  Sex: Female
  Weight: 63.5036 kg

DRUGS (1)
  1. BEXTRA [Suspect]
     Indication: SPONDYLITIS
     Dosage: (10 MG, 1 IN 1 D)
     Dates: start: 20030729

REACTIONS (1)
  - MYOCARDIAL INFARCTION [None]
